FAERS Safety Report 20209509 (Version 2)
Quarter: 2022Q1

REPORT INFORMATION
  Report Type: Spontaneous
  Country: AU (occurrence: AU)
  Receive Date: 20211221
  Receipt Date: 20220218
  Transmission Date: 20220424
  Serious: Yes (Life-Threatening, Hospitalization, Other)
  Sender: FDA-Public Use
  Company Number: None

PATIENT
  Age: 56 Year
  Sex: Female

DRUGS (1)
  1. PREDNISOLONE [Suspect]
     Active Substance: PREDNISOLONE
     Indication: Asthma
     Dosage: 37.5 MILLIGRAM, UNK
     Route: 048

REACTIONS (8)
  - Respiratory failure [Recovered/Resolved]
  - Distributive shock [Recovered/Resolved]
  - Sepsis pasteurella [Recovered/Resolved]
  - Empyema [Recovered/Resolved]
  - Bacteraemia [Recovered/Resolved]
  - Pneumonia [Recovered/Resolved]
  - Pasteurella infection [Recovered/Resolved]
  - Respiratory tract infection [Recovered/Resolved]
